FAERS Safety Report 4595844-X (Version None)
Quarter: 2005Q1

REPORT INFORMATION
  Report Type: 
  Country: None (occurrence: None)
  Receive Date: 20050224
  Receipt Date: 20050224
  Transmission Date: 20050727
  Serious: Yes (Other)
  Sender: FDA-Public Use
  Company Number: None

PATIENT
  Sex: Male

DRUGS (5)
  1. DEFINITY [Suspect]
     Indication: ECHOCARDIOGRAM
     Dates: start: 20040908, end: 20040908
  2. GLYBURIDE [Concomitant]
  3. PROPRANOLOL [Concomitant]
  4. FUROSEMIDE [Concomitant]
  5. SALSALATE [Concomitant]

REACTIONS (2)
  - ABDOMINAL PAIN LOWER [None]
  - INFUSION RELATED REACTION [None]
